FAERS Safety Report 5715024-1 (Version None)
Quarter: 2008Q2

REPORT INFORMATION
  Report Type: 
  Country: None (occurrence: None)
  Receive Date: 20080423
  Receipt Date: 20080414
  Transmission Date: 20081010
  Serious: Yes (Hospitalization)
  Sender: FDA-Public Use
  Company Number: US-ABBOTT-08P-163-0447253-00

PATIENT
  Sex: Female
  Weight: 56.75 kg

DRUGS (6)
  1. HUMIRA [Suspect]
     Indication: CROHN'S DISEASE
     Route: 058
     Dates: start: 20071121
  2. HUMIRA [Suspect]
     Route: 058
     Dates: end: 20080201
  3. VALACYCLOVIR [Concomitant]
     Indication: HERPES VIRUS INFECTION
     Route: 048
     Dates: start: 20080301
  4. CYCLOSPORINE [Concomitant]
     Indication: CROHN'S DISEASE
     Route: 048
     Dates: start: 20080201
  5. OMEPRAZOLE [Concomitant]
     Indication: CROHN'S DISEASE
     Dosage: OVER THE COUNTER
     Route: 048
  6. MESALAMINE [Concomitant]
     Indication: CROHN'S DISEASE
     Route: 048
     Dates: start: 20071001

REACTIONS (4)
  - HERPES VIRUS INFECTION [None]
  - SWELLING FACE [None]
  - URTICARIA [None]
  - WOUND HAEMORRHAGE [None]
